FAERS Safety Report 16454137 (Version 2)
Quarter: 2019Q2

REPORT INFORMATION
  Report Type: Spontaneous
  Country: US (occurrence: US)
  Receive Date: 20190619
  Receipt Date: 20190627
  Transmission Date: 20190711
  Serious: Yes (Other)
  Sender: FDA-Public Use
  Company Number: US-PURDUE-USA-2019-0147506

PATIENT
  Sex: Male

DRUGS (2)
  1. PERCOCET [Concomitant]
     Active Substance: ACETAMINOPHEN\OXYCODONE HYDROCHLORIDE
     Indication: PRODUCT USED FOR UNKNOWN INDICATION
     Dosage: 1-2 TABLET, Q4- 6H
     Route: 065
  2. OXYCONTIN [Suspect]
     Active Substance: OXYCODONE HYDROCHLORIDE
     Indication: PAIN
     Dosage: 5 MG, Q6H
     Route: 048
     Dates: start: 2006, end: 2009

REACTIONS (9)
  - Nausea [Unknown]
  - Hand fracture [Unknown]
  - Euphoric mood [Unknown]
  - Wrist fracture [Unknown]
  - Joint dislocation [Unknown]
  - Lower limb fracture [Unknown]
  - Foot fracture [Unknown]
  - Upper limb fracture [Unknown]
  - Off label use [Recovered/Resolved]

NARRATIVE: CASE EVENT DATE: 2006
